FAERS Safety Report 5598025-6 (Version None)
Quarter: 2008Q1

REPORT INFORMATION
  Report Type: 
  Country: None (occurrence: None)
  Receive Date: 20080122
  Receipt Date: 20080115
  Transmission Date: 20080703
  Serious: Yes (Hospitalization)
  Sender: FDA-Public Use
  Company Number: DE-WYE-G00897608

PATIENT
  Sex: Female
  Weight: 90 kg

DRUGS (2)
  1. TREVILOR RETARD [Suspect]
     Dosage: 10 TABLETS (OVERDOSE AMOUNT 750MG)
     Route: 048
     Dates: start: 20080115, end: 20080115
  2. LAMICTAL [Suspect]
     Dosage: 10 TABLETS (OVERDOSE AMOUNT 2000MG)
     Route: 048
     Dates: start: 20080115, end: 20080115

REACTIONS (3)
  - DEPRESSED LEVEL OF CONSCIOUSNESS [None]
  - GASTROINTESTINAL SOUNDS ABNORMAL [None]
  - INTENTIONAL OVERDOSE [None]
